FAERS Safety Report 10396459 (Version 1)
Quarter: 2014Q1

REPORT INFORMATION
  Report Type: Spontaneous
  Country: US (occurrence: None)
  Receive Date: 20130815
  Receipt Date: 20130815
  Transmission Date: 20141002
  Serious: Yes (Other)
  Sender: FDA-Public Use
  Company Number: ADR-2013-00126

PATIENT
  Sex: Female

DRUGS (2)
  1. LIORESAL INTRATHECAL (BACLOFEN INJECTION)2000MCG/ML [Suspect]
     Indication: MUSCLE SPASTICITY
     Dosage: 641MCG/DAY
  2. VALIUM (ORAL) [Concomitant]

REACTIONS (18)
  - Hypotension [None]
  - Sedation [None]
  - Disease progression [None]
  - Unresponsive to stimuli [None]
  - Discomfort [None]
  - Muscle tightness [None]
  - Therapeutic response decreased [None]
  - Hypotonia [None]
  - Muscle rigidity [None]
  - Muscle spasticity [None]
  - Muscle spasms [None]
  - Musculoskeletal stiffness [None]
  - Clonus [None]
  - Opisthotonus [None]
  - Overdose [None]
  - Hypertonia [None]
  - Underdose [None]
  - No therapeutic response [None]
